FAERS Safety Report 7750495-0 (Version None)
Quarter: 2011Q3

REPORT INFORMATION
  Report Type: 
  Country: None (occurrence: None)
  Receive Date: 20110914
  Receipt Date: 20110913
  Transmission Date: 20111222
  Serious: Yes (Death)
  Sender: FDA-Public Use
  Company Number: VE-PFIZER INC-2011212266

PATIENT
  Age: 65 Year
  Sex: Male

DRUGS (3)
  1. DILANTIN [Concomitant]
     Indication: CONVULSION
     Dosage: UNK
     Route: 048
  2. LIPITOR [Suspect]
     Indication: CEREBROVASCULAR ACCIDENT
     Dosage: 40 MG, 1X/DAY
     Route: 048
     Dates: start: 20091001
  3. PLAVIX [Concomitant]
     Dosage: 75 MG, UNK
     Route: 048

REACTIONS (1)
  - RESPIRATORY ARREST [None]
